FAERS Safety Report 5153604-5 (Version None)
Quarter: 2006Q4

REPORT INFORMATION
  Report Type: 
  Country: None (occurrence: None)
  Receive Date: 20061113
  Receipt Date: 20061101
  Transmission Date: 20070319
  Serious: Yes (Hospitalization)
  Sender: FDA-Public Use
  Company Number: 2006-02498

PATIENT
  Age: 67 Year
  Sex: Male
  Weight: 76 kg

DRUGS (9)
  1. VELCADE [Suspect]
     Indication: MANTLE CELL LYMPHOMA
     Dosage: 3.00 MG, INTRAVENOUS; 2.60 MG, INTRAVENOUS
     Route: 042
     Dates: start: 20051222, end: 20060316
  2. VELCADE [Suspect]
     Indication: MANTLE CELL LYMPHOMA
     Dosage: 3.00 MG, INTRAVENOUS; 2.60 MG, INTRAVENOUS
     Route: 042
     Dates: end: 20060316
  3. DOXORUBICIN HCL [Concomitant]
  4. VINCRISTINE [Concomitant]
  5. PREDNISONE TAB [Concomitant]
  6. MABTHERA [Concomitant]
  7. TAREG (VALSARTAN) [Concomitant]
  8. ISOPTIN [Concomitant]
  9. SIMVASTATIN [Concomitant]

REACTIONS (5)
  - AUTONOMIC NERVOUS SYSTEM IMBALANCE [None]
  - CONDITION AGGRAVATED [None]
  - HYPOTENSION [None]
  - INTESTINAL OBSTRUCTION [None]
  - POLYNEUROPATHY [None]
